FAERS Safety Report 7884918-3 (Version None)
Quarter: 2011Q4

REPORT INFORMATION
  Report Type: 
  Country: None (occurrence: None)
  Receive Date: 20111102
  Receipt Date: 20111021
  Transmission Date: 20120403
  Serious: Yes (Hospitalization, Other)
  Sender: FDA-Public Use
  Company Number: US-BAYER-2011-042442

PATIENT
  Age: 38 Year
  Sex: Female
  Weight: 68 kg

DRUGS (12)
  1. IBUPROFEN [Concomitant]
     Indication: MUSCLE SPASMS
  2. MYLANTA [ALUMINIUM HYDROXIDE,MAGNESIUM HYDROXIDE,SIMETICONE] [Concomitant]
     Indication: GASTRIC DISORDER
     Dosage: UNK UNK, PRN
  3. YAZ [Suspect]
     Indication: CONTRACEPTION
     Dosage: UNK
     Dates: start: 20080101, end: 20090101
  4. YAZ [Suspect]
     Indication: DYSMENORRHOEA
  5. NEXIUM [Concomitant]
     Dosage: 40 MG, OM
  6. LAXATIVES [Concomitant]
     Indication: DIARRHOEA
     Dosage: UNK UNK, PRN
  7. CONSTIPATION MEDS [Concomitant]
     Indication: CONSTIPATION
     Dosage: UNK UNK, PRN
  8. TYLENOL-500 [Concomitant]
     Indication: NASOPHARYNGITIS
     Dosage: UNK UNK, PRN
  9. YAZ [Suspect]
     Indication: PREMENSTRUAL SYNDROME
  10. CETIRIZINE HCL [Concomitant]
     Indication: MULTIPLE ALLERGIES
     Dosage: UNK UNK, PRN
  11. IBUPROFEN [Concomitant]
     Indication: HEADACHE
  12. PRILOSEC [Concomitant]
     Dosage: 20 MG, OM

REACTIONS (3)
  - PAIN [None]
  - CHOLECYSTITIS CHRONIC [None]
  - GALLBLADDER DISORDER [None]
